FAERS Safety Report 25359650 (Version 1)
Quarter: 2025Q2

REPORT INFORMATION
  Report Type: Spontaneous
  Country: US (occurrence: US)
  Receive Date: 20250526
  Receipt Date: 20250526
  Transmission Date: 20250716
  Serious: No
  Sender: JOHNSON AND JOHNSON
  Company Number: US-VIIV HEALTHCARE-US2025062263

PATIENT
  Age: 31 Year
  Sex: Male

DRUGS (2)
  1. RILPIVIRINE [Suspect]
     Active Substance: RILPIVIRINE
     Indication: Asymptomatic HIV infection
     Route: 065
     Dates: start: 202111
  2. CABOTEGRAVIR [Suspect]
     Active Substance: CABOTEGRAVIR
     Indication: Asymptomatic HIV infection
     Route: 065
     Dates: start: 202111

REACTIONS (1)
  - Product use in unapproved therapeutic environment [Unknown]
